FAERS Safety Report 8045920-4 (Version None)
Quarter: 2012Q1

REPORT INFORMATION
  Report Type: 
  Country: None (occurrence: None)
  Receive Date: 20120113
  Receipt Date: 20111209
  Transmission Date: 20120608
  Serious: Yes (Hospitalization)
  Sender: FDA-Public Use
  Company Number: JP-GLAXOSMITHKLINE-B0768965A

PATIENT
  Sex: Male

DRUGS (10)
  1. LAMICTAL [Suspect]
     Indication: MANIA
     Dosage: 25MG PER DAY
     Route: 048
     Dates: start: 20111003, end: 20111104
  2. TETRAMIDE [Concomitant]
     Route: 048
  3. DEPAKENE [Concomitant]
     Dosage: 200MG PER DAY
     Route: 048
     Dates: start: 20100222, end: 20111203
  4. CHINESE MEDICINE [Concomitant]
     Dosage: 5G PER DAY
     Route: 048
     Dates: start: 20100125, end: 20111203
  5. LAMICTAL [Suspect]
     Dosage: 50MG PER DAY
     Route: 048
     Dates: start: 20111105, end: 20111205
  6. PROMETHAZINE HCL [Concomitant]
     Dosage: 10MG PER DAY
     Route: 048
     Dates: start: 20100209, end: 20111203
  7. AMOBAN [Concomitant]
     Dosage: 10MG PER DAY
     Route: 048
     Dates: start: 20111003, end: 20111203
  8. SEROQUEL [Concomitant]
     Route: 048
  9. UNKNOWN [Concomitant]
     Route: 048
  10. UNKNOWN [Concomitant]
     Route: 048

REACTIONS (5)
  - CONVULSION [None]
  - DRUG ERUPTION [None]
  - RASH [None]
  - GENERALISED ERYTHEMA [None]
  - DRUG INTERACTION [None]
